FAERS Safety Report 8487110-7 (Version None)
Quarter: 2012Q3

REPORT INFORMATION
  Report Type: 
  Country: None (occurrence: None)
  Receive Date: 20120704
  Receipt Date: 20120702
  Transmission Date: 20120928
  Serious: Yes (Other)
  Sender: FDA-Public Use
  Company Number: PHEH2012US009155

PATIENT
  Sex: Female

DRUGS (8)
  1. MECLIZINE [Concomitant]
     Dosage: 25 MG, UNK
  2. METOPROLOL SUCCINATE [Concomitant]
     Dosage: 50 MG, UNK
  3. LOVASTATIN [Concomitant]
     Dosage: UNK UKN, UNK
  4. DIOVAN [Suspect]
     Dosage: 320 MG, QD
     Route: 048
  5. VITAMIN D [Concomitant]
     Dosage: UNK UKN, UNK
  6. EYE DROPS [Concomitant]
     Dosage: UNK UKN, UNK
  7. ANASTROZOLE [Concomitant]
     Dosage: 1 MG, UNK
  8. DYAZIDE [Concomitant]
     Dosage: UNK UKN, UNK

REACTIONS (1)
  - BREAST CANCER STAGE I [None]
